FAERS Safety Report 13530636 (Version 2)
Quarter: 2017Q2

REPORT INFORMATION
  Report Type: Spontaneous
  Country: FR (occurrence: FR)
  Receive Date: 20170510
  Receipt Date: 20170531
  Transmission Date: 20170830
  Serious: Yes (Hospitalization)
  Sender: FDA-Public Use
  Company Number: FR-ROCHE-1933029

PATIENT
  Age: 52 Year
  Sex: Female

DRUGS (3)
  1. CORTANCYL [Concomitant]
     Active Substance: PREDNISONE
  2. COTELLIC [Suspect]
     Active Substance: COBIMETINIB
     Indication: MALIGNANT MELANOMA
     Route: 048
     Dates: start: 20170414, end: 20170421
  3. ZELBORAF [Suspect]
     Active Substance: VEMURAFENIB
     Indication: MALIGNANT MELANOMA
     Route: 048
     Dates: start: 20170414, end: 20170421

REACTIONS (6)
  - Pruritus [Unknown]
  - Erythema [Unknown]
  - Malaise [Unknown]
  - Nausea [Unknown]
  - Face oedema [Unknown]
  - Headache [Unknown]

NARRATIVE: CASE EVENT DATE: 20170424
